FAERS Safety Report 9968188 (Version 1)
Quarter: 2014Q1

REPORT INFORMATION
  Report Type: Report from Study
  Country: US (occurrence: US)
  Receive Date: 20140306
  Receipt Date: 20140306
  Transmission Date: 20141002
  Serious: No
  Sender: FDA-Public Use
  Company Number: US-ABBVIE-13P-163-1144567-00

PATIENT
  Age: 79 Year
  Sex: Female
  Weight: 40.86 kg

DRUGS (5)
  1. HUMIRA [Suspect]
     Indication: RHEUMATOID ARTHRITIS
     Dates: start: 20130827
  2. PREDNISONE [Concomitant]
     Indication: PRODUCT USED FOR UNKNOWN INDICATION
     Dosage: 5 MG DAILY
  3. TRAMADOL [Concomitant]
     Indication: PAIN
     Dosage: 4 TIMES PER DAY AS NEEDED
  4. GABAPENTIN [Concomitant]
     Indication: INSOMNIA
     Dosage: AT HOUR OF SLEEP
  5. FOSAMAX [Concomitant]
     Indication: OSTEOPOROSIS

REACTIONS (3)
  - Device malfunction [Recovered/Resolved]
  - Injection site pain [Unknown]
  - Injection site pain [Recovered/Resolved]
